FAERS Safety Report 16380662 (Version 1)
Quarter: 2019Q2

REPORT INFORMATION
  Report Type: Report from Study
  Country: CA (occurrence: CA)
  Receive Date: 20190601
  Receipt Date: 20190601
  Transmission Date: 20190711
  Serious: Yes (Other)
  Sender: FDA-Public Use
  Company Number: CA-ACCORD-130303

PATIENT
  Age: 68 Year
  Sex: Male

DRUGS (2)
  1. MITOMYCIN. [Suspect]
     Active Substance: MITOMYCIN
     Indication: OPEN ANGLE GLAUCOMA
  2. FLUOROURACIL. [Suspect]
     Active Substance: FLUOROURACIL
     Indication: OPEN ANGLE GLAUCOMA

REACTIONS (2)
  - Off label use [Unknown]
  - Conjunctival filtering bleb leak [Recovered/Resolved]
